FAERS Safety Report 8157227-5 (Version None)
Quarter: 2012Q1

REPORT INFORMATION
  Report Type: 
  Country: None (occurrence: None)
  Receive Date: 20120222
  Receipt Date: 20120222
  Transmission Date: 20120608
  Serious: Yes (Life-Threatening, Other)
  Sender: FDA-Public Use
  Company Number: None

PATIENT
  Age: 43 Year
  Sex: Female
  Weight: 63.502 kg

DRUGS (1)
  1. ENPRESSE-28 [Suspect]
     Indication: CONTRACEPTION
     Dosage: TAKE ONE TABLET BY MOUTH
     Dates: start: 20120101, end: 20120113

REACTIONS (20)
  - SPEECH DISORDER [None]
  - IRRITABILITY [None]
  - CONFUSIONAL STATE [None]
  - MEMORY IMPAIRMENT [None]
  - MUSCLE SPASMS [None]
  - HEART RATE INCREASED [None]
  - PRODUCT SUBSTITUTION ISSUE [None]
  - DRUG HYPERSENSITIVITY [None]
  - ABDOMINAL PAIN UPPER [None]
  - TACHYPHRENIA [None]
  - BREAST TENDERNESS [None]
  - BLOOD PRESSURE INCREASED [None]
  - WEIGHT INCREASED [None]
  - PARAESTHESIA [None]
  - NAUSEA [None]
  - CEREBROVASCULAR ACCIDENT [None]
  - FEELING JITTERY [None]
  - HEADACHE [None]
  - MOOD SWINGS [None]
  - OEDEMA PERIPHERAL [None]
